FAERS Safety Report 18050731 (Version 1)
Quarter: 2020Q3

REPORT INFORMATION
  Report Type: Report from Study
  Country: US (occurrence: US)
  Receive Date: 20200721
  Receipt Date: 20200721
  Transmission Date: 20201103
  Serious: Yes (Life-Threatening, Hospitalization, Disabling, Other)
  Sender: FDA-Public Use
  Company Number: US-PFIZER INC-2020276928

PATIENT
  Age: 59 Year
  Sex: Male
  Weight: 82.6 kg

DRUGS (13)
  1. MEDROL [Concomitant]
     Active Substance: METHYLPREDNISOLONE
  2. NEURONTIN [Concomitant]
     Active Substance: GABAPENTIN
  3. IRINOTECAN HCL [Suspect]
     Active Substance: IRINOTECAN HYDROCHLORIDE
     Indication: COLORECTAL CANCER METASTATIC
     Dosage: 350 MG FORTNIGHTY
     Route: 042
     Dates: start: 20171113
  4. ATORVASTATIN CALCIUM. [Concomitant]
     Active Substance: ATORVASTATIN CALCIUM
  5. JANUVIA [Concomitant]
     Active Substance: SITAGLIPTIN PHOSPHATE
  6. MACROBID [CLARITHROMYCIN] [Concomitant]
     Active Substance: CLARITHROMYCIN
     Dosage: UNK
     Dates: start: 20171108
  7. METFORMIN HYDROCHLORIDE. [Concomitant]
     Active Substance: METFORMIN HYDROCHLORIDE
  8. VALSARTAN. [Concomitant]
     Active Substance: VALSARTAN
  9. 5?FLUOROURACIL [FLUOROURACIL] [Suspect]
     Active Substance: FLUOROURACIL
     Dosage: 4630 MG FORTNIGHTY
     Route: 042
  10. TRESIBA [Concomitant]
     Active Substance: INSULIN DEGLUDEC
  11. 5?FLUOROURACIL [FLUOROURACIL] [Suspect]
     Active Substance: FLUOROURACIL
     Indication: COLORECTAL CANCER METASTATIC
     Dosage: 770 MG FORTNIGHTY
     Route: 040
     Dates: start: 20171113
  12. LEUCOVORIN. [Suspect]
     Active Substance: LEUCOVORIN
     Indication: COLORECTAL CANCER METASTATIC
     Dosage: 772 MG FORTNIGHTY
     Route: 042
     Dates: start: 20171113
  13. AUGMENTIN [Concomitant]
     Active Substance: AMOXICILLIN\CLAVULANATE POTASSIUM

REACTIONS (9)
  - Septic shock [Recovered/Resolved]
  - Hypotension [Recovered/Resolved]
  - Community acquired infection [Recovered/Resolved]
  - Pneumonia pneumococcal [Recovered/Resolved]
  - Atrial fibrillation [Recovered/Resolved]
  - Dehydration [Recovered/Resolved]
  - Pyrexia [Recovered/Resolved]
  - Respiratory failure [Recovered/Resolved]
  - Sepsis [Recovered/Resolved]

NARRATIVE: CASE EVENT DATE: 20180119
